FAERS Safety Report 5692686-9 (Version None)
Quarter: 2008Q2

REPORT INFORMATION
  Report Type: 
  Country: None (occurrence: None)
  Receive Date: 20080402
  Receipt Date: 20080320
  Transmission Date: 20081010
  Serious: Yes (Other)
  Sender: FDA-Public Use
  Company Number: AT-GENENTECH-258459

PATIENT
  Age: 49 Year
  Sex: Female
  Weight: 82 kg

DRUGS (1)
  1. AVASTIN [Suspect]
     Indication: COLORECTAL CANCER METASTATIC
     Dosage: 7.5 MG/KG, UNK
     Route: 042

REACTIONS (3)
  - ENTERITIS [None]
  - HAEMATOCHEZIA [None]
  - MUCOUS MEMBRANE DISORDER [None]
